FAERS Safety Report 17107348 (Version 4)
Quarter: 2020Q1

REPORT INFORMATION
  Report Type: Spontaneous
  Country: US (occurrence: US)
  Receive Date: 20191203
  Receipt Date: 20200306
  Transmission Date: 20200409
  Serious: Yes (Congenital Anomaly, Other)
  Sender: FDA-Public Use
  Company Number: NVSC2019US049844

PATIENT
  Sex: Male

DRUGS (2)
  1. ZOFRAN ODT [Suspect]
     Active Substance: ONDANSETRON HYDROCHLORIDE
     Indication: FOETAL EXPOSURE DURING PREGNANCY
     Dosage: MOTHER DOSE: 04 MG
     Route: 064
  2. ZOFRAN [Suspect]
     Active Substance: ONDANSETRON HYDROCHLORIDE
     Indication: FOETAL EXPOSURE DURING PREGNANCY
     Dosage: MOTHER DOSE: 04 MG, QD
     Route: 064

REACTIONS (65)
  - Atrial septal defect [Unknown]
  - Hemivertebra [Unknown]
  - Aortic valve incompetence [Unknown]
  - Neonatal tachypnoea [Unknown]
  - Foetal growth restriction [Unknown]
  - Upper respiratory tract infection [Unknown]
  - Pain [Unknown]
  - Rhinorrhoea [Unknown]
  - Pyrexia [Unknown]
  - Oropharyngeal pain [Unknown]
  - Tonsillitis [Unknown]
  - Fallot^s tetralogy [Unknown]
  - Cardiac failure congestive [Unknown]
  - Right ventricular enlargement [Unknown]
  - Emotional distress [Unknown]
  - Cryptorchism [Unknown]
  - Transient tachypnoea of the newborn [Unknown]
  - Cardiac murmur [Unknown]
  - Conjunctivitis [Unknown]
  - Otitis media [Unknown]
  - Cough [Unknown]
  - Pharyngitis [Unknown]
  - Right-to-left cardiac shunt [Unknown]
  - Dysmorphism [Unknown]
  - Diarrhoea [Unknown]
  - Palpitations [Unknown]
  - Sepsis neonatal [Unknown]
  - Impaired gastric emptying [Unknown]
  - Pulmonary valve stenosis [Unknown]
  - Gross motor delay [Unknown]
  - Cyanosis neonatal [Unknown]
  - Hypertonia neonatal [Unknown]
  - Pneumonia [Unknown]
  - Hypertension [Unknown]
  - Blood cholesterol increased [Unknown]
  - Patent ductus arteriosus [Unknown]
  - Left-to-right cardiac shunt [Unknown]
  - Dacryostenosis congenital [Unknown]
  - Tricuspid valve incompetence [Unknown]
  - Failure to thrive [Unknown]
  - Contusion [Unknown]
  - Cardiomegaly [Unknown]
  - Tachycardia [Unknown]
  - Deformity [Unknown]
  - Anhedonia [Unknown]
  - Visual impairment [Unknown]
  - Rhinitis allergic [Unknown]
  - Thyroglossal cyst [Unknown]
  - Spina bifida [Unknown]
  - Neonatal respiratory distress [Unknown]
  - Right atrial dilatation [Unknown]
  - Right ventricular hypertrophy [Unknown]
  - Clavicle fracture [Unknown]
  - Gastrooesophageal reflux disease [Unknown]
  - Speech disorder [Unknown]
  - Nasal congestion [Unknown]
  - Dermatitis diaper [Unknown]
  - Pupils unequal [Unknown]
  - Blood thyroid stimulating hormone increased [Unknown]
  - Ventricular septal defect [Unknown]
  - Congenital anomaly [Unknown]
  - Pulmonary oedema neonatal [Unknown]
  - Foetal exposure during pregnancy [Unknown]
  - Anaemia [Unknown]
  - Injury [Not Recovered/Not Resolved]
